FAERS Safety Report 9639730 (Version 1)
Quarter: 2013Q4

REPORT INFORMATION
  Report Type: Spontaneous
  Country: US (occurrence: None)
  Receive Date: 20131021
  Receipt Date: 20131021
  Transmission Date: 20140711
  Serious: Yes (Other)
  Sender: FDA-Public Use
  Company Number: None

PATIENT
  Age: 55 Year
  Sex: Female
  Weight: 104.33 kg

DRUGS (1)
  1. LEVOTHYROXINE 50 MCG LANNET CO [Suspect]
     Indication: THYROID DISORDER
     Dosage: 1 PILL PER DAY ONCE DAILY TAKEN BY MOUTH
     Route: 048
     Dates: start: 20130930, end: 20131020

REACTIONS (6)
  - Fatigue [None]
  - Alopecia [None]
  - Weight increased [None]
  - Cyst [None]
  - Lymph gland infection [None]
  - Purulence [None]
